FAERS Safety Report 15969212 (Version 1)
Quarter: 2019Q1

REPORT INFORMATION
  Report Type: Spontaneous
  Country: FR (occurrence: FR)
  Receive Date: 20190215
  Receipt Date: 20190215
  Transmission Date: 20190418
  Serious: Yes (Hospitalization)
  Sender: FDA-Public Use
  Company Number: FR-BAYER-2019-031610

PATIENT
  Age: 31 Year
  Sex: Female
  Weight: 73 kg

DRUGS (1)
  1. ACETYLSALICYLIC ACID (CARDIO) [Suspect]
     Active Substance: ASPIRIN
     Indication: POISONING DELIBERATE
     Dosage: 30000 MG, UNK
     Route: 048
     Dates: start: 20181002, end: 20181002

REACTIONS (4)
  - Vomiting [Recovered/Resolved]
  - Abdominal pain upper [Recovered/Resolved]
  - Metabolic acidosis [Recovered/Resolved]
  - Tinnitus [Recovered/Resolved]

NARRATIVE: CASE EVENT DATE: 20181002
